FAERS Safety Report 21192072 (Version 3)
Quarter: 2022Q4

REPORT INFORMATION
  Report Type: Report from Study
  Country: US (occurrence: US)
  Receive Date: 20220809
  Receipt Date: 20221012
  Transmission Date: 20230113
  Serious: Yes (Death, Hospitalization)
  Sender: FDA-Public Use
  Company Number: US-BIOGEN-2022BI01146055

PATIENT
  Age: 56 Year
  Sex: Male
  Weight: 95.2 kg

DRUGS (28)
  1. TYSABRI [Suspect]
     Active Substance: NATALIZUMAB
     Indication: Graft versus host disease
     Route: 050
     Dates: start: 20191004
  2. WHITE PETROLATUM [Concomitant]
     Active Substance: PETROLATUM
     Indication: Product used for unknown indication
     Route: 050
     Dates: start: 20200908, end: 20200914
  3. MINERAL OIL [Concomitant]
     Active Substance: MINERAL OIL
     Indication: Product used for unknown indication
     Route: 050
     Dates: start: 20200908, end: 20200914
  4. HYDRALAZINE [Concomitant]
     Active Substance: HYDRALAZINE HYDROCHLORIDE
     Indication: Product used for unknown indication
     Route: 050
     Dates: start: 20200909, end: 20200913
  5. HYDRALAZINE [Concomitant]
     Active Substance: HYDRALAZINE HYDROCHLORIDE
     Route: 050
     Dates: start: 20200914, end: 20200916
  6. HYDRALAZINE [Concomitant]
     Active Substance: HYDRALAZINE HYDROCHLORIDE
     Route: 050
     Dates: start: 20200916, end: 20200922
  7. LABETALOL [Concomitant]
     Active Substance: LABETALOL\LABETALOL HYDROCHLORIDE
     Indication: Product used for unknown indication
     Route: 050
     Dates: start: 20200909, end: 20200913
  8. LABETALOL [Concomitant]
     Active Substance: LABETALOL\LABETALOL HYDROCHLORIDE
     Route: 050
     Dates: start: 20200914, end: 20200914
  9. LABETALOL [Concomitant]
     Active Substance: LABETALOL\LABETALOL HYDROCHLORIDE
     Route: 050
     Dates: start: 20200914, end: 20200915
  10. LABETALOL [Concomitant]
     Active Substance: LABETALOL\LABETALOL HYDROCHLORIDE
     Route: 050
     Dates: start: 20200915, end: 20200922
  11. LANTUS [Concomitant]
     Active Substance: INSULIN GLARGINE
     Indication: Product used for unknown indication
     Route: 050
     Dates: start: 20200910, end: 20200915
  12. SODIUM CHLORIDE [Concomitant]
     Active Substance: SODIUM CHLORIDE
     Indication: Product used for unknown indication
     Dosage: 0.65% NASAL SPRAY; 2 SPRAY
     Route: 050
     Dates: start: 20200910, end: 20200923
  13. DOXYCYCLINE [Concomitant]
     Active Substance: DOXYCYCLINE
     Indication: Product used for unknown indication
     Route: 050
     Dates: start: 20200911, end: 20200914
  14. METHYLPREDNISOLONE [Concomitant]
     Active Substance: METHYLPREDNISOLONE
     Indication: Product used for unknown indication
     Route: 050
     Dates: start: 20200912, end: 20200920
  15. NOVOLOG [Concomitant]
     Active Substance: INSULIN ASPART
     Indication: Product used for unknown indication
     Dosage: 100 UNIT/ML; 12 UNITS
     Route: 050
     Dates: start: 20200911, end: 20200917
  16. HUMULIN N [Concomitant]
     Active Substance: INSULIN HUMAN
     Indication: Product used for unknown indication
     Dosage: 100 UNIT/ML; 12 UNITS
     Route: 050
     Dates: start: 20200912, end: 20200921
  17. LANSOPRAZOLE [Concomitant]
     Active Substance: LANSOPRAZOLE
     Indication: Product used for unknown indication
     Route: 050
     Dates: start: 20200913, end: 20200923
  18. ACYCLOVIR [Concomitant]
     Active Substance: ACYCLOVIR
     Indication: Product used for unknown indication
     Route: 050
     Dates: start: 20200912, end: 20200912
  19. ACYCLOVIR [Concomitant]
     Active Substance: ACYCLOVIR
     Dosage: 200MG/5MG
     Route: 050
     Dates: start: 20200912, end: 20200913
  20. POSACONAZOLE [Concomitant]
     Active Substance: POSACONAZOLE
     Indication: Product used for unknown indication
     Route: 050
     Dates: start: 20200913, end: 20200914
  21. AZITHROMYCIN [Concomitant]
     Active Substance: AZITHROMYCIN
     Indication: Product used for unknown indication
     Route: 050
     Dates: start: 20200915, end: 20200922
  22. CARBOXYMETHYLCELLULOSE [Concomitant]
     Active Substance: CARBOXYMETHYLCELLULOSE
     Indication: Product used for unknown indication
     Route: 050
     Dates: start: 20200914, end: 20200922
  23. MONTELUKAST [Concomitant]
     Active Substance: MONTELUKAST SODIUM
     Indication: Product used for unknown indication
     Route: 050
     Dates: start: 20200914, end: 20200922
  24. MELATONIN [Concomitant]
     Active Substance: MELATONIN
     Indication: Product used for unknown indication
     Route: 050
     Dates: start: 20200914, end: 20200922
  25. HYDROMORPHONE [Concomitant]
     Active Substance: HYDROMORPHONE
     Indication: Product used for unknown indication
     Route: 050
     Dates: start: 20200916, end: 20200922
  26. SENNA [Concomitant]
     Active Substance: SENNA LEAF\SENNOSIDES\SENNOSIDES A AND B
     Indication: Product used for unknown indication
     Route: 050
     Dates: start: 20200921, end: 20200923
  27. FUROSEMIDE [Concomitant]
     Active Substance: FUROSEMIDE
     Indication: Product used for unknown indication
     Route: 050
     Dates: start: 20200908, end: 20200921
  28. FUROSEMIDE [Concomitant]
     Active Substance: FUROSEMIDE
     Route: 050
     Dates: start: 20200922, end: 20200922

REACTIONS (3)
  - Graft versus host disease [Fatal]
  - Gastroenteritis norovirus [Unknown]
  - Respiratory failure [Unknown]

NARRATIVE: CASE EVENT DATE: 20200809
